FAERS Safety Report 4431980-6 (Version None)
Quarter: 2004Q3

REPORT INFORMATION
  Report Type: 
  Country: None (occurrence: None)
  Receive Date: 20040819
  Receipt Date: 20040803
  Transmission Date: 20050211
  Serious: Yes (Hospitalization, Disabling)
  Sender: FDA-Public Use
  Company Number: DSA_24802_2004

PATIENT
  Age: 25 Year
  Sex: Male

DRUGS (10)
  1. ENALAPRIL MALEATE [Suspect]
     Indication: HYPERTENSION
     Dosage: 10 MG PO
     Route: 048
     Dates: start: 20040113, end: 20040203
  2. PHOSEX [Concomitant]
  3. ASPIRIN [Concomitant]
  4. CALCICHEW [Concomitant]
  5. DOXAZOSIN MESYLATE [Concomitant]
  6. FERROUS SULFATE TAB [Concomitant]
  7. FUROSEMIDE [Concomitant]
  8. VENOFER [Concomitant]
  9. OMEPRAZOLE [Concomitant]
  10. SODIUM BICARBONATE [Concomitant]

REACTIONS (1)
  - PRIAPISM [None]
